FAERS Safety Report 4750581-3 (Version None)
Quarter: 2005Q3

REPORT INFORMATION
  Report Type: 
  Country: None (occurrence: None)
  Receive Date: 20050823
  Receipt Date: 20050427
  Transmission Date: 20060218
  Serious: Yes (Other)
  Sender: FDA-Public Use
  Company Number: PHBS2005BE06117

PATIENT
  Age: 25 Year
  Sex: Male

DRUGS (14)
  1. AMYL NITRITE [Suspect]
     Indication: SEXUAL ACTIVITY INCREASED
  2. LORAZEPAM [Concomitant]
     Indication: PSYCHOTIC DISORDER
     Dates: start: 20040406
  3. LORAMET [Concomitant]
     Dates: start: 20040415
  4. MAGNETON [Concomitant]
     Dates: start: 20050421
  5. ANTABUSE [Concomitant]
     Dates: start: 20040801
  6. IMPROMEN DECANOAS [Concomitant]
     Dates: start: 20040801
  7. OMEPRAZOLE [Concomitant]
     Dates: start: 20040801
  8. SERTRALINE HCL [Concomitant]
     Dates: start: 20040101
  9. AKINETON [Concomitant]
     Dates: start: 20050201
  10. ALUMINUM HYDROXIDE AND MAGNESIUM TRISILICATE [Concomitant]
     Dates: start: 20050201
  11. LEPONEX [Suspect]
     Indication: PSYCHOTIC DISORDER
     Dosage: 25 MG/DAY
     Route: 048
     Dates: start: 20050322, end: 20050328
  12. LEPONEX [Suspect]
     Dosage: 37.5 MG/DAY
     Route: 048
     Dates: start: 20050329, end: 20050405
  13. LEPONEX [Suspect]
     Dosage: 50 MG/DAY
     Route: 048
     Dates: start: 20050406, end: 20050414
  14. LEPONEX [Suspect]
     Dosage: 100 MG/DAY
     Route: 048
     Dates: start: 20050415, end: 20050427

REACTIONS (9)
  - BLOOD LACTATE DEHYDROGENASE INCREASED [None]
  - HAEMATOCRIT DECREASED [None]
  - HAEMOGLOBIN DECREASED [None]
  - HAEMOLYSIS [None]
  - HAEMOLYTIC ANAEMIA [None]
  - HAPTOGLOBIN DECREASED [None]
  - MEAN CELL VOLUME INCREASED [None]
  - RED BLOOD CELL COUNT DECREASED [None]
  - RED BLOOD CELL MORPHOLOGY ABNORMAL [None]
